FAERS Safety Report 5012451-5 (Version None)
Quarter: 2006Q2

REPORT INFORMATION
  Report Type: 
  Country: None (occurrence: None)
  Receive Date: 20060526
  Receipt Date: 20041014
  Transmission Date: 20061013
  Serious: No
  Sender: FDA-Public Use
  Company Number: JP-BOEHRINGER INGELHEIM PHARMACEUTICALS, INC.-2004-BP-10735NB

PATIENT
  Sex: Male
  Weight: 63 kg

DRUGS (1)
  1. MICARDIS [Suspect]
     Indication: ESSENTIAL HYPERTENSION
     Route: 048
     Dates: start: 20040304, end: 20041009

REACTIONS (1)
  - NO ADVERSE EFFECT [None]
